FAERS Safety Report 18721003 (Version 2)
Quarter: 2021Q2

REPORT INFORMATION
  Report Type: Report from Study
  Country: US (occurrence: US)
  Receive Date: 20210108
  Receipt Date: 20210425
  Transmission Date: 20210717
  Serious: No
  Sender: FDA-Public Use
  Company Number: NVSC2021US003345

PATIENT

DRUGS (1)
  1. KESIMPTA [Suspect]
     Active Substance: OFATUMUMAB
     Indication: MULTIPLE SCLEROSIS
     Route: 065

REACTIONS (7)
  - Hypoaesthesia [Unknown]
  - Slow speech [Unknown]
  - Asthenia [Unknown]
  - Vision blurred [Unknown]
  - Confusional state [Unknown]
  - Tremor [Unknown]
  - Balance disorder [Unknown]
